FAERS Safety Report 9435308 (Version 1)
Quarter: 2013Q3

REPORT INFORMATION
  Report Type: Spontaneous
  Country: FR (occurrence: FR)
  Receive Date: 20130801
  Receipt Date: 20130801
  Transmission Date: 20140515
  Serious: Yes (Hospitalization)
  Sender: FDA-Public Use
  Company Number: FR-JNJFOC-20130715843

PATIENT
  Age: 75 Year
  Sex: Male

DRUGS (12)
  1. XARELTO [Suspect]
     Indication: CEREBROVASCULAR ACCIDENT PROPHYLAXIS
     Route: 048
     Dates: start: 20130409
  2. XARELTO [Suspect]
     Indication: ATRIAL FIBRILLATION
     Route: 048
     Dates: start: 20130409
  3. APROVEL [Concomitant]
     Route: 065
  4. APROVEL [Concomitant]
     Route: 065
  5. CRESTOR [Concomitant]
     Route: 065
  6. KARDEGIC [Concomitant]
     Route: 065
  7. CARDENSIEL [Concomitant]
     Route: 065
  8. LEVOTHYROX [Concomitant]
     Route: 065
  9. AMLODIPINE [Concomitant]
     Route: 065
  10. URAPIDIL [Concomitant]
     Route: 065
  11. HYPERIUM [Concomitant]
     Route: 065
  12. NEXIUM [Concomitant]
     Route: 065

REACTIONS (1)
  - Cerebral infarction [Not Recovered/Not Resolved]
